FAERS Safety Report 12275542 (Version 1)
Quarter: 2016Q2

REPORT INFORMATION
  Report Type: Spontaneous
  Country: BG (occurrence: BG)
  Receive Date: 20160415
  Receipt Date: 20160415
  Transmission Date: 20160815
  Serious: Yes (Life-Threatening, Hospitalization)
  Sender: FDA-Public Use
  Company Number: BG-ASTRAZENECA-2016SE38648

PATIENT
  Age: 69 Year
  Sex: Male

DRUGS (11)
  1. ATORVASTATIN [Concomitant]
     Active Substance: ATORVASTATIN
  2. ACETYLSALICYLIC ACID [Concomitant]
     Active Substance: ASPIRIN
  3. TORASEMIDE [Concomitant]
     Active Substance: TORSEMIDE
     Dosage: 200 MG X 1/2 , IN THE MORNING
  4. CARVEDILOL. [Concomitant]
     Active Substance: CARVEDILOL
     Dosage: 6.25 MG X 1/2 TABLET DAILY
  5. ZOFENOPRIL [Concomitant]
     Active Substance: ZOFENOPRIL
  6. TRIMETAZIDINE [Concomitant]
     Active Substance: TRIMETAZIDINE
     Dosage: 2 X 35 MG
  7. METILDIGOXIN [Concomitant]
     Active Substance: METILDIGOXIN
  8. BRILIQUE [Suspect]
     Active Substance: TICAGRELOR
     Indication: ACUTE CORONARY SYNDROME
     Route: 048
  9. BRILIQUE [Suspect]
     Active Substance: TICAGRELOR
     Indication: ACUTE CORONARY SYNDROME
     Route: 048
  10. SPIRONOLACTONE. [Concomitant]
     Active Substance: SPIRONOLACTONE
     Dosage: 2 X 25 MG
  11. ACETYLSALICYLIC ACID [Concomitant]
     Active Substance: ASPIRIN

REACTIONS (6)
  - Acute left ventricular failure [Recovering/Resolving]
  - Colon adenoma [Unknown]
  - Circulatory collapse [Unknown]
  - Purpura [Unknown]
  - Rectal haemorrhage [Recovered/Resolved]
  - Dyspnoea [Recovered/Resolved]

NARRATIVE: CASE EVENT DATE: 20151103
